FAERS Safety Report 24052731 (Version 1)
Quarter: 2024Q3

REPORT INFORMATION
  Report Type: Spontaneous
  Country: DK (occurrence: DK)
  Receive Date: 20240705
  Receipt Date: 20240705
  Transmission Date: 20241016
  Serious: Yes (Hospitalization)
  Sender: JOHNSON AND JOHNSON
  Company Number: None

PATIENT
  Age: 72 Year
  Sex: Female
  Weight: 115 kg

DRUGS (8)
  1. RISPERDAL CONSTA [Interacting]
     Active Substance: RISPERIDONE
     Indication: Bipolar disorder
     Route: 065
     Dates: start: 20130419
  2. RISPERDAL CONSTA [Interacting]
     Active Substance: RISPERIDONE
  3. RISPERDAL CONSTA [Interacting]
     Active Substance: RISPERIDONE
  4. RISPERDAL CONSTA [Interacting]
     Active Substance: RISPERIDONE
  5. SEMAGLUTIDE [Interacting]
     Active Substance: SEMAGLUTIDE
     Indication: Overweight
     Dosage: 0.25MG ONCE WEEKLY FROM FEB2024. 0.5MG ONCE WEEKLY FROM 07MAR2024. 1MG ONCE WEEKLY FROM 02APR2024
     Route: 058
     Dates: start: 202402, end: 20240606
  6. LITHIUM CITRATE [Interacting]
     Active Substance: LITHIUM CITRATE
     Indication: Bipolar disorder
     Dosage: 6 MMOL LI+ MORNING AND 9 MMOL LI+ EVENING
     Route: 048
     Dates: start: 20200819
  7. VESICARE [Concomitant]
     Active Substance: SOLIFENACIN SUCCINATE
     Indication: Dysuria
     Dates: start: 20240201
  8. PRADAXA [Concomitant]
     Active Substance: DABIGATRAN ETEXILATE MESYLATE
     Indication: Thrombosis prophylaxis
     Route: 048
     Dates: start: 2016

REACTIONS (5)
  - Drug interaction [Unknown]
  - Apathy [Unknown]
  - Antipsychotic drug level increased [Recovered/Resolved]
  - Fatigue [Unknown]
  - Asthenia [Unknown]

NARRATIVE: CASE EVENT DATE: 20240501
